FAERS Safety Report 4730793-5 (Version None)
Quarter: 2005Q3

REPORT INFORMATION
  Report Type: 
  Country: None (occurrence: None)
  Receive Date: 20050725
  Receipt Date: 20050520
  Transmission Date: 20060218
  Serious: No
  Sender: FDA-Public Use
  Company Number: USA050597989

PATIENT
  Age: 7 Year
  Sex: Female
  Weight: 41 kg

DRUGS (1)
  1. STRATTERA [Suspect]
     Indication: ATTENTION DEFICIT/HYPERACTIVITY DISORDER
     Dosage: 20 MG
     Dates: end: 20050301

REACTIONS (5)
  - APHASIA [None]
  - PSYCHOMOTOR HYPERACTIVITY [None]
  - THIRST [None]
  - TONGUE DISORDER [None]
  - TONGUE DRY [None]
